FAERS Safety Report 6347777-6 (Version None)
Quarter: 2009Q3

REPORT INFORMATION
  Report Type: 
  Country: None (occurrence: None)
  Receive Date: 20090910
  Receipt Date: 20090903
  Transmission Date: 20100115
  Serious: Yes (Death)
  Sender: FDA-Public Use
  Company Number: A0806417A

PATIENT
  Sex: Male
  Weight: 130 kg

DRUGS (8)
  1. SERETIDE [Suspect]
     Indication: CHRONIC OBSTRUCTIVE PULMONARY DISEASE
     Route: 055
     Dates: start: 20090601, end: 20090717
  2. INSULIN [Concomitant]
     Dates: start: 20060101, end: 20090718
  3. TRIPTANOL [Concomitant]
     Dates: start: 20050101, end: 20090718
  4. AVANDIA [Concomitant]
     Dates: start: 20060101, end: 20090718
  5. GLUCOFORMIN [Concomitant]
  6. ASPIRIN [Concomitant]
  7. PIPERONYL BUTOXIDE [Concomitant]
  8. PYRETHRUM EXTRACT [Concomitant]

REACTIONS (5)
  - CARDIAC FAILURE [None]
  - CHRONIC OBSTRUCTIVE PULMONARY DISEASE [None]
  - DIABETES MELLITUS [None]
  - ERYSIPELAS [None]
  - HYPERTENSION [None]
